FAERS Safety Report 9995797 (Version 1)
Quarter: 2014Q1

REPORT INFORMATION
  Report Type: Spontaneous
  Country: US (occurrence: None)
  Receive Date: 20140221
  Receipt Date: 20140221
  Transmission Date: 20141002
  Serious: Yes (Other)
  Sender: FDA-Public Use
  Company Number: 1000053052

PATIENT
  Age: 70 Year
  Sex: Male

DRUGS (2)
  1. TUDORZA PRESSAIR [Suspect]
     Indication: CHRONIC OBSTRUCTIVE PULMONARY DISEASE
     Dosage: 400 MCG (400 MCG, 1 IN 1 D), RESPIRATORY (INHALATION)
     Route: 055
     Dates: start: 20140122, end: 20140122
  2. ADVAIR (SERETIDE) (SERETIDE) [Concomitant]

REACTIONS (4)
  - Dyspnoea [None]
  - Dry mouth [None]
  - Anxiety [None]
  - Choking [None]
